FAERS Safety Report 17462859 (Version 4)
Quarter: 2020Q1

REPORT INFORMATION
  Report Type: Report from Study
  Country: US (occurrence: US)
  Receive Date: 20200226
  Receipt Date: 20200324
  Transmission Date: 20200409
  Serious: Yes (Hospitalization, Other)
  Sender: FDA-Public Use
  Company Number: NVSC2020US020156

PATIENT
  Age: 4 Year
  Sex: Female
  Weight: 21.5 kg

DRUGS (8)
  1. FARYDAK [Suspect]
     Active Substance: PANOBINOSTAT
     Indication: BRAIN STEM GLIOMA
     Dosage: 30 MG, QD
     Route: 048
     Dates: start: 20190402
  2. DEXAMETHASONE. [Concomitant]
     Active Substance: DEXAMETHASONE
     Dosage: 1 MG IN MORNING, 0.5 MG IN NIGHT
     Route: 065
     Dates: start: 20190507
  3. AMLODINE [Concomitant]
     Active Substance: AMLODIPINE BESYLATE
     Indication: PRODUCT USED FOR UNKNOWN INDICATION
     Route: 065
  4. DEXAMETHASONE. [Concomitant]
     Active Substance: DEXAMETHASONE
     Dosage: 1 MG, BID
     Route: 065
     Dates: start: 20190502
  5. DEXAMETHASONE. [Concomitant]
     Active Substance: DEXAMETHASONE
     Dosage: 0.5 MG, BID
     Route: 065
     Dates: start: 20190514
  6. DEXAMETHASONE. [Concomitant]
     Active Substance: DEXAMETHASONE
     Indication: BRAIN NEOPLASM
     Route: 065
  7. DEXAMETHASONE. [Concomitant]
     Active Substance: DEXAMETHASONE
     Indication: NEUROLOGICAL SYMPTOM
     Dosage: 1.5 MG
     Route: 065
     Dates: start: 20190416
  8. DEXAMETHASONE. [Concomitant]
     Active Substance: DEXAMETHASONE
     Dosage: 2 MG IN MORNING, 1 MG IN NIGHT
     Route: 065
     Dates: start: 20190423

REACTIONS (4)
  - White blood cell count decreased [Recovered/Resolved]
  - Hypokalaemia [Recovered/Resolved]
  - Hypophosphataemia [Recovered/Resolved]
  - Platelet count decreased [Recovered/Resolved]

NARRATIVE: CASE EVENT DATE: 20190423
